FAERS Safety Report 9682145 (Version 1)
Quarter: 2013Q4

REPORT INFORMATION
  Report Type: Report from Study
  Country: SK (occurrence: SK)
  Receive Date: 20131111
  Receipt Date: 20131111
  Transmission Date: 20140711
  Serious: Yes (Hospitalization, Other)
  Sender: FDA-Public Use
  Company Number: SK-ROCHE-1301564

PATIENT
  Age: 77 Year
  Sex: Male
  Weight: 80 kg

DRUGS (6)
  1. RANIBIZUMAB [Suspect]
     Indication: AGE-RELATED MACULAR DEGENERATION
     Route: 050
     Dates: start: 20121130
  2. RANIBIZUMAB [Suspect]
     Route: 050
     Dates: start: 20130905
  3. AGEN (SLOVAKIA) [Concomitant]
     Route: 065
     Dates: start: 2002
  4. LOKREN [Concomitant]
     Route: 065
     Dates: start: 2000
  5. OLICARD [Concomitant]
     Route: 065
     Dates: start: 2000
  6. BRIMONIDINE [Concomitant]
     Route: 065
     Dates: start: 201302

REACTIONS (2)
  - Ischaemic stroke [Recovered/Resolved]
  - Carotid arteriosclerosis [Unknown]
